FAERS Safety Report 16682732 (Version 3)
Quarter: 2020Q2

REPORT INFORMATION
  Report Type: Spontaneous
  Country: US (occurrence: US)
  Receive Date: 20190808
  Receipt Date: 20200617
  Transmission Date: 20200713
  Serious: No
  Sender: FDA-Public Use
  Company Number: US-PFIZER INC-2019335432

PATIENT
  Age: 19 Year
  Sex: Female

DRUGS (1)
  1. XELJANZ [Suspect]
     Active Substance: TOFACITINIB CITRATE
     Indication: JUVENILE IDIOPATHIC ARTHRITIS
     Dosage: 5 MG, 2X/DAY
     Route: 048

REACTIONS (7)
  - Product use in unapproved indication [Unknown]
  - Pyrexia [Recovered/Resolved]
  - Memory impairment [Unknown]
  - Product dose omission [Unknown]
  - Cough [Unknown]
  - Off label use [Unknown]
  - Fatigue [Unknown]
